FAERS Safety Report 12800507 (Version 5)
Quarter: 2018Q1

REPORT INFORMATION
  Report Type: Report from Study
  Country: None (occurrence: CA)
  Receive Date: 20160930
  Receipt Date: 20180108
  Transmission Date: 20180508
  Serious: Yes (Hospitalization)
  Sender: FDA-Public Use
  Company Number: CA-ABBVIE-16P-028-1742859-00

PATIENT
  Age: 65 Year
  Sex: Male
  Weight: 79.5 kg

DRUGS (2)
  1. MODERIBA [Suspect]
     Active Substance: RIBAVIRIN
     Indication: CHRONIC HEPATITIS C
     Dosage: AM DOSE: 600 MG / PM DOSE: 400 MG
     Route: 048
     Dates: start: 20160803, end: 20161025
  2. HOLKIRA PAK [Suspect]
     Active Substance: DASABUVIR\OMBITASVIR\PARITAPREVIR\RITONAVIR
     Indication: CHRONIC HEPATITIS C
     Dosage: TWO TABLETS 12.5/75/50 MG ONCE DAILY, AND ONE DASABUVIR 250MG TABLET TWICE DAILY
     Route: 048
     Dates: start: 20160803, end: 20161025

REACTIONS (2)
  - Bacteraemia [Recovering/Resolving]
  - Wound [Unknown]

NARRATIVE: CASE EVENT DATE: 20160919
